FAERS Safety Report 5492871-5 (Version None)
Quarter: 2007Q4

REPORT INFORMATION
  Report Type: 
  Country: None (occurrence: None)
  Receive Date: 20071023
  Receipt Date: 20070814
  Transmission Date: 20080405
  Serious: No
  Sender: FDA-Public Use
  Company Number: US-BRISTOL-MYERS SQUIBB COMPANY-13877451

PATIENT
  Age: 43 Year
  Sex: Female
  Weight: 111 kg

DRUGS (3)
  1. BUSPAR [Suspect]
     Indication: NERVOUSNESS
     Route: 048
     Dates: start: 20070415, end: 20070810
  2. CYMBALTA [Concomitant]
     Dates: end: 20070810
  3. LITHIUM CARBONATE [Concomitant]
     Dates: end: 20070810

REACTIONS (6)
  - ANXIETY [None]
  - DEPRESSION [None]
  - LEARNING DISORDER [None]
  - SPEECH DISORDER [None]
  - TINNITUS [None]
  - WEIGHT INCREASED [None]
